FAERS Safety Report 11634957 (Version 1)
Quarter: 2015Q4

REPORT INFORMATION
  Report Type: Report from Study
  Country: BR (occurrence: BR)
  Receive Date: 20151015
  Receipt Date: 20151015
  Transmission Date: 20160304
  Serious: Yes (Other)
  Sender: FDA-Public Use
  Company Number: ALCN2015BR006459

PATIENT
  Sex: Male

DRUGS (2)
  1. TRAVATAN [Suspect]
     Active Substance: TRAVOPROST
     Indication: INTRAOCULAR PRESSURE INCREASED
     Dosage: 1 DF, UNK
     Route: 047
  2. TIMOLOL FALCON [Suspect]
     Active Substance: TIMOLOL
     Indication: INTRAOCULAR PRESSURE INCREASED
     Dosage: 1 DF, UNK
     Route: 047

REACTIONS (1)
  - Visual acuity reduced [Unknown]
